FAERS Safety Report 5081402-X (Version None)
Quarter: 2006Q3

REPORT INFORMATION
  Report Type: 
  Country: None (occurrence: None)
  Receive Date: 20060811
  Receipt Date: 20060727
  Transmission Date: 20061208
  Serious: Yes (Hospitalization)
  Sender: FDA-Public Use
  Company Number: 2006001519

PATIENT
  Age: 59 Year
  Sex: Female
  Weight: 44.55 kg

DRUGS (1)
  1. TARCEVA [Suspect]
     Indication: CERVIX CARCINOMA
     Dosage: 150 MG (QD), ORAL
     Route: 048
     Dates: start: 20021114, end: 20021210

REACTIONS (1)
  - UROGENITAL FISTULA [None]
